FAERS Safety Report 9265383 (Version 2)
Quarter: 2013Q4

REPORT INFORMATION
  Report Type: Spontaneous
  Country: GB (occurrence: GB)
  Receive Date: 20130501
  Receipt Date: 20131022
  Transmission Date: 20140711
  Serious: Yes (Other)
  Sender: FDA-Public Use
  Company Number: PHHY2013GB041433

PATIENT
  Age: 80 Year
  Sex: Female
  Weight: 84 kg

DRUGS (1)
  1. ALENDRONIC ACID [Suspect]
     Dosage: UNK

REACTIONS (2)
  - Pollakiuria [Recovered/Resolved]
  - Cystitis [Unknown]
